FAERS Safety Report 19065015 (Version 1)
Quarter: 2021Q1

REPORT INFORMATION
  Report Type: Spontaneous
  Country: US (occurrence: US)
  Receive Date: 20210326
  Receipt Date: 20210326
  Transmission Date: 20210420
  Serious: No
  Sender: FDA-Public Use
  Company Number: US-ROCHE-2729750

PATIENT
  Age: 80 Year
  Sex: Female

DRUGS (1)
  1. HERCEPTIN HYLECTA [Suspect]
     Active Substance: HYALURONIDASE-OYSK\TRASTUZUMAB
     Indication: METASTATIC NEOPLASM
     Dosage: ONGOING: UNKNOWN, AS A SINGLE AGENT
     Route: 058

REACTIONS (1)
  - Injection site pain [Unknown]
